FAERS Safety Report 18286978 (Version 1)
Quarter: 2020Q3

REPORT INFORMATION
  Report Type: Spontaneous
  Country: FR (occurrence: FR)
  Receive Date: 20200921
  Receipt Date: 20200921
  Transmission Date: 20201103
  Serious: Yes (Other)
  Sender: FDA-Public Use
  Company Number: FR-AUROBINDO-AUR-APL-2020-048322

PATIENT
  Age: 55 Year
  Sex: Female

DRUGS (4)
  1. DEXAMETHASONE. [Concomitant]
     Active Substance: DEXAMETHASONE
     Indication: B PRECURSOR TYPE ACUTE LEUKAEMIA
     Dosage: UNK (INFUSION)
     Route: 037
  2. NILOTINIB [Suspect]
     Active Substance: NILOTINIB
     Indication: B PRECURSOR TYPE ACUTE LEUKAEMIA
     Dosage: 400 MILLIGRAM, TWO TIMES A DAY
     Route: 037
  3. VINCRISTINE [Concomitant]
     Active Substance: VINCRISTINE
     Indication: B PRECURSOR TYPE ACUTE LEUKAEMIA
     Dosage: UNK (INFUSION)
     Route: 037
  4. IMATINIB. [Suspect]
     Active Substance: IMATINIB MESYLATE
     Indication: B PRECURSOR TYPE ACUTE LEUKAEMIA
     Dosage: 300 MILLIGRAM, TWO TIMES A DAY
     Route: 065

REACTIONS (3)
  - Drug resistance [Recovering/Resolving]
  - Leukaemia recurrent [Recovering/Resolving]
  - Drug tolerance decreased [Recovering/Resolving]
